FAERS Safety Report 7761928-8 (Version None)
Quarter: 2011Q3

REPORT INFORMATION
  Report Type: 
  Country: None (occurrence: None)
  Receive Date: 20110920
  Receipt Date: 20110909
  Transmission Date: 20111222
  Serious: Yes (Other)
  Sender: FDA-Public Use
  Company Number: CA-UCBSA-028839

PATIENT
  Sex: Female
  Weight: 60 kg

DRUGS (10)
  1. ASPIRIN [Concomitant]
     Indication: PROPHYLAXIS
     Route: 048
  2. ALTACE [Concomitant]
     Indication: HYPERTENSION
     Route: 048
  3. CIMZIA [Suspect]
     Route: 058
     Dates: start: 20110216, end: 20110725
  4. ARTHROTEC [Concomitant]
     Indication: RHEUMATOID ARTHRITIS
     Dosage: DOSE PER INTAKE : 75
     Route: 048
  5. CIMZIA [Suspect]
     Indication: RHEUMATOID ARTHRITIS
     Route: 058
     Dates: start: 20101222, end: 20110119
  6. ADVIL LIQUI-GELS [Concomitant]
     Indication: RHEUMATOID ARTHRITIS
     Route: 048
  7. TRAMADOL HYDROCHLORIDE/ACETAMINOPHEN [Concomitant]
     Indication: RHEUMATOID ARTHRITIS
     Dosage: 5/325
     Route: 048
  8. CRESTOR [Concomitant]
     Indication: HYPERCHOLESTEROLAEMIA
     Route: 048
  9. TYLENOL-500 [Concomitant]
     Indication: RHEUMATOID ARTHRITIS
     Dosage: 1-2 Q4H
     Route: 048
  10. GLYBRIDE [Concomitant]
     Indication: TYPE 2 DIABETES MELLITUS
     Dosage: MG
     Route: 048

REACTIONS (7)
  - PHARYNGITIS STREPTOCOCCAL [None]
  - SYNOVIAL RUPTURE [None]
  - SINUSITIS [None]
  - UPPER RESPIRATORY TRACT INFECTION [None]
  - DRUG INEFFECTIVE [None]
  - MALAISE [None]
  - RHEUMATOID ARTHRITIS [None]
